FAERS Safety Report 6631349-X (Version None)
Quarter: 2010Q1

REPORT INFORMATION
  Report Type: 
  Country: None (occurrence: None)
  Receive Date: 20100311
  Receipt Date: 20100311
  Transmission Date: 20100710
  Serious: Yes (Hospitalization)
  Sender: FDA-Public Use
  Company Number: None

PATIENT
  Age: 79 Year
  Sex: Male
  Weight: 61.3 kg

DRUGS (9)
  1. FERAHEME [Suspect]
     Indication: IRON DEFICIENCY ANAEMIA
     Dosage: 510MG X1 IV BOLUS
     Route: 040
     Dates: start: 20100128, end: 20100128
  2. FERAHEME [Suspect]
     Indication: NEPHROGENIC ANAEMIA
     Dosage: 510MG X1 IV BOLUS
     Route: 040
     Dates: start: 20100128, end: 20100128
  3. LISINOPRIL [Concomitant]
  4. CLONIDINE [Concomitant]
  5. NIFEDIPINE [Concomitant]
  6. LASIX [Concomitant]
  7. CILOSTAZOL [Concomitant]
  8. NEPHRO-VITE [Concomitant]
  9. FOSRENOL [Concomitant]

REACTIONS (6)
  - ABDOMINAL PAIN [None]
  - BILIARY TRACT DISORDER [None]
  - DIVERTICULUM [None]
  - LIVER FUNCTION TEST ABNORMAL [None]
  - SEPSIS [None]
  - ULCER [None]
